FAERS Safety Report 6391847-3 (Version None)
Quarter: 2009Q4

REPORT INFORMATION
  Report Type: 
  Country: None (occurrence: None)
  Receive Date: 20091007
  Receipt Date: 20090928
  Transmission Date: 20100525
  Serious: Yes (Hospitalization, Other)
  Sender: FDA-Public Use
  Company Number: US-AMGEN-QUU364203

PATIENT
  Sex: Female

DRUGS (2)
  1. ENBREL [Suspect]
     Indication: RHEUMATOID ARTHRITIS
     Route: 058
     Dates: start: 20080830
  2. METHOTREXATE [Concomitant]
     Route: 048
     Dates: start: 20080830

REACTIONS (4)
  - PNEUMONIA [None]
  - PULMONARY GRANULOMA [None]
  - PULMONARY MASS [None]
  - RHEUMATOID ARTHRITIS [None]
